FAERS Safety Report 15330529 (Version 1)
Quarter: 2018Q3

REPORT INFORMATION
  Report Type: Spontaneous
  Country: US (occurrence: US)
  Receive Date: 20180824
  Receipt Date: 20180824
  Transmission Date: 20181010
  Serious: Yes (Other)
  Sender: FDA-Public Use
  Company Number: None

PATIENT
  Age: 66 Year
  Sex: Female
  Weight: 97.07 kg

DRUGS (8)
  1. LOSARTAN. [Concomitant]
     Active Substance: LOSARTAN
  2. LABETALOL [Concomitant]
     Active Substance: LABETALOL\LABETALOL HYDROCHLORIDE
  3. IRON [Concomitant]
     Active Substance: IRON
  4. VALSARTAN AND HYDROCHLOROTHIAZIDE [Suspect]
     Active Substance: HYDROCHLOROTHIAZIDE\VALSARTAN
     Indication: HYPERTENSION
     Dosage: ?          QUANTITY:1 PILL DAY;?
     Route: 048
     Dates: start: 201604, end: 201806
  5. VITAMIN D3 [Concomitant]
     Active Substance: CHOLECALCIFEROL
  6. MULTIVITAMIN [Concomitant]
     Active Substance: VITAMINS
  7. OMEPRAZOLE DR [Concomitant]
     Active Substance: OMEPRAZOLE
  8. LOW ASPIRIN [Concomitant]

REACTIONS (5)
  - Neck pain [None]
  - Musculoskeletal pain [None]
  - Asthenia [None]
  - Myalgia [None]
  - Arthralgia [None]

NARRATIVE: CASE EVENT DATE: 20160605
